FAERS Safety Report 8900135 (Version 2)
Quarter: 2013Q1

REPORT INFORMATION
  Report Type: Spontaneous
  Country: US (occurrence: US)
  Receive Date: 20121109
  Receipt Date: 20130115
  Transmission Date: 20140127
  Serious: No
  Sender: FDA-Public Use
  Company Number: US-009507513-1211USA002052

PATIENT
  Age: 16 Year
  Sex: Female
  Weight: 43.84 kg

DRUGS (4)
  1. IMPLANON [Suspect]
     Indication: CONTRACEPTION
     Dosage: 1 ROD UP TO 3 YEARS
     Route: 058
     Dates: start: 201206
  2. TOPAMAX [Concomitant]
  3. ZOMIG [Concomitant]
  4. ZANTAC [Concomitant]

REACTIONS (2)
  - Skin burning sensation [Unknown]
  - Implant site pain [Unknown]
